FAERS Safety Report 8837211 (Version 3)
Quarter: 2014Q3

REPORT INFORMATION
  Report Type: Spontaneous
  Country: US (occurrence: US)
  Receive Date: 20121012
  Receipt Date: 20140825
  Transmission Date: 20150326
  Serious: Yes (Hospitalization, Other)
  Sender: FDA-Public Use
  Company Number: US-009507513-2011SP014799

PATIENT
  Sex: Female
  Weight: 70.31 kg

DRUGS (6)
  1. ADVAIR HFA [Concomitant]
     Active Substance: FLUTICASONE PROPIONATE\SALMETEROL XINAFOATE
     Indication: ASTHMA
     Dosage: 1 PUFF BID
     Route: 055
     Dates: start: 1988
  2. METHOTREXATE [Concomitant]
     Active Substance: METHOTREXATE
     Indication: ANKYLOSING SPONDYLITIS
     Dosage: 0.8 ML, QW
     Route: 058
  3. GONADOTROPIN, CHORIONIC [Concomitant]
     Active Substance: CHORIOGONADOTROPIN ALFA
     Indication: MEDICAL DIET
     Dosage: INJECTION
  4. XOPENEX [Concomitant]
     Active Substance: LEVALBUTEROL HYDROCHLORIDE
     Indication: ASTHMA
     Dosage: PRN
     Route: 055
     Dates: start: 1988
  5. ALBUTEROL. [Concomitant]
     Active Substance: ALBUTEROL
     Indication: ASTHMA
     Dates: start: 1988
  6. NUVARING [Suspect]
     Active Substance: ETHINYL ESTRADIOL\ETONOGESTREL
     Indication: CONTRACEPTION
     Route: 067
     Dates: start: 200903, end: 20090417

REACTIONS (23)
  - Oedema peripheral [Unknown]
  - Syncope [Unknown]
  - Insomnia [Unknown]
  - Pulmonary infarction [Unknown]
  - Chest pain [Not Recovered/Not Resolved]
  - Asthenia [Not Recovered/Not Resolved]
  - Peripheral embolism [Unknown]
  - Dizziness [Not Recovered/Not Resolved]
  - Folliculitis [Not Recovered/Not Resolved]
  - Lung infiltration [Unknown]
  - Deep vein thrombosis [Unknown]
  - Transient ischaemic attack [Unknown]
  - Thrombophlebitis superficial [Recovering/Resolving]
  - Pain in extremity [Unknown]
  - Pneumonia [Recovered/Resolved]
  - Hepatic cyst [Unknown]
  - Alopecia [Not Recovered/Not Resolved]
  - Haematoma [Recovering/Resolving]
  - Thrombophlebitis [Not Recovered/Not Resolved]
  - Pulmonary embolism [Unknown]
  - Acne [Not Recovered/Not Resolved]
  - Anxiety [Not Recovered/Not Resolved]
  - Back pain [Not Recovered/Not Resolved]

NARRATIVE: CASE EVENT DATE: 200904
